FAERS Safety Report 9704288 (Version 2)
Quarter: 2013Q4

REPORT INFORMATION
  Report Type: Spontaneous
  Country: FR (occurrence: FR)
  Receive Date: 20131122
  Receipt Date: 20131122
  Transmission Date: 20140711
  Serious: Yes (Death, Hospitalization)
  Sender: FDA-Public Use
  Company Number: FR-SA-2013SA106994

PATIENT
  Age: 80 Year
  Sex: Male
  Weight: 74.5 kg

DRUGS (14)
  1. JEVTANA [Suspect]
     Indication: PROSTATE CANCER
     Route: 042
     Dates: start: 20130930
  2. ANTINEOPLASTIC AGENTS [Suspect]
     Indication: PRODUCT USED FOR UNKNOWN INDICATION
     Dosage: 3 LOADING DOSE
     Route: 065
     Dates: start: 20130930
  3. ANTINEOPLASTIC AGENTS [Suspect]
     Indication: PRODUCT USED FOR UNKNOWN INDICATION
     Dosage: 1 AND 2 LOADING DOSE
     Route: 065
  4. POLARAMINE [Concomitant]
     Indication: URTICARIA
     Dosage: STRENGTH: 5MG/1ML
     Route: 042
  5. METHYLPREDNISOLONE [Concomitant]
     Route: 042
  6. AZANTAC [Concomitant]
     Dosage: STRENGTH: 50 MG/2 ML
     Route: 042
     Dates: start: 20130930
  7. PRIMPERAN [Concomitant]
     Indication: NAUSEA
     Dosage: STRENGTH: 10 MG/2 ML
     Route: 042
     Dates: start: 20130930
  8. ONDANSETRON [Concomitant]
     Indication: NAUSEA
     Route: 042
     Dates: start: 20130930
  9. LERCANIDIPINE [Concomitant]
     Indication: HYPERTENSION
     Route: 048
  10. SPIRONOLACTONE [Concomitant]
     Route: 048
  11. ATORVASTATIN [Concomitant]
     Indication: HYPERCHOLESTEROLAEMIA
     Route: 048
  12. EUPANTOL [Concomitant]
     Indication: GASTROOESOPHAGEAL REFLUX DISEASE
     Route: 048
  13. VASTAREL [Concomitant]
     Indication: ANGINA PECTORIS
     Route: 048
  14. GRANULOCYTE COLONY-STIMULATING FACTOR NOS [Concomitant]
     Indication: PROPHYLAXIS
     Dates: start: 20131002

REACTIONS (4)
  - Leukopenia [Fatal]
  - Anaemia [Fatal]
  - Thrombocytopenia [Fatal]
  - Pyrexia [Fatal]
